FAERS Safety Report 9445030 (Version 2)
Quarter: 2013Q3

REPORT INFORMATION
  Report Type: Spontaneous
  Country: US (occurrence: None)
  Receive Date: 20130801
  Receipt Date: 20130911
  Transmission Date: 20140515
  Serious: Yes (Hospitalization)
  Sender: FDA-Public Use
  Company Number: 2013037099

PATIENT
  Sex: Male
  Weight: 182 kg

DRUGS (10)
  1. HIZENTRA [Suspect]
     Indication: IMMUNODEFICIENCY COMMON VARIABLE
     Dosage: 1XWEEK
     Route: 058
  2. DIPHENHYDRAMINE [Concomitant]
  3. EMLA [Concomitant]
  4. EPI-PEN [Concomitant]
  5. LIDOCAINE [Concomitant]
  6. GLIMEPIRIDE [Concomitant]
  7. SIMVASTATIN [Concomitant]
  8. ASPIRIN [Concomitant]
  9. PLAVIX [Concomitant]
  10. CENTRUM [Concomitant]

REACTIONS (2)
  - Muscular weakness [None]
  - Gastric disorder [None]
